FAERS Safety Report 7206312-0 (Version None)
Quarter: 2011Q1

REPORT INFORMATION
  Report Type: 
  Country: None (occurrence: None)
  Receive Date: 20110103
  Receipt Date: 20101230
  Transmission Date: 20110831
  Serious: No
  Sender: FDA-Public Use
  Company Number: PHHY2009TW61096

PATIENT
  Sex: Female

DRUGS (4)
  1. TASIGNA [Suspect]
     Indication: CHRONIC MYELOID LEUKAEMIA
     Dosage: 800 MG
     Route: 048
  2. GLEEVEC [Suspect]
     Indication: CHRONIC MYELOID LEUKAEMIA
     Dosage: 500 MG DAILY
     Route: 048
  3. SPRYCEL [Suspect]
     Dosage: 2 TABLET QD
  4. GLEEVEC [Suspect]
     Dosage: 2 TABLETS 50 MG DAILY
     Route: 048

REACTIONS (6)
  - NAUSEA [None]
  - HEADACHE [None]
  - PAIN IN EXTREMITY [None]
  - FATIGUE [None]
  - CHEST DISCOMFORT [None]
  - ABDOMINAL DISTENSION [None]
